FAERS Safety Report 12623940 (Version 1)
Quarter: 2016Q3

REPORT INFORMATION
  Report Type: Report from Study
  Country: AR (occurrence: AR)
  Receive Date: 20160804
  Receipt Date: 20160804
  Transmission Date: 20161109
  Serious: Yes (Other)
  Sender: FDA-Public Use
  Company Number: AR-ABBVIE-16P-007-1693877-00

PATIENT
  Age: 43 Year
  Sex: Male

DRUGS (1)
  1. ZEMPLAR [Suspect]
     Active Substance: PARICALCITOL
     Indication: HYPERPARATHYROIDISM SECONDARY
     Route: 042
     Dates: start: 20151019

REACTIONS (2)
  - Cholelithiasis [Recovered/Resolved]
  - Arteriovenous fistula thrombosis [Recovering/Resolving]

NARRATIVE: CASE EVENT DATE: 201602
